FAERS Safety Report 20175298 (Version 1)
Quarter: 2021Q4

REPORT INFORMATION
  Report Type: Spontaneous
  Country: US (occurrence: None)
  Receive Date: 20211209
  Receipt Date: 20211209
  Transmission Date: 20220303
  Serious: Yes (Other)
  Sender: FDA-Public Use
  Company Number: None

PATIENT
  Age: 37 Year
  Sex: Male
  Weight: 83.25 kg

DRUGS (8)
  1. .DELTA.8-TETRAHYDROCANNABINOL [Suspect]
     Active Substance: .DELTA.8-TETRAHYDROCANNABINOL
     Indication: Myalgia
     Dosage: OTHER QUANTITY : 1 I ML CARTRIDGE;?FREQUENCY : AS NEEDED;?
     Route: 055
     Dates: start: 20211029, end: 20211201
  2. NASONEX [Concomitant]
     Active Substance: MOMETASONE FUROATE
  3. SINGULAIR [Concomitant]
     Active Substance: MONTELUKAST SODIUM
  4. BCAA RECOVERY [Concomitant]
  5. C4 PRE WORKOUT [Concomitant]
  6. LIQUID IV ELECTROLYTE POWDER [Concomitant]
  7. WHEY [Concomitant]
     Active Substance: WHEY
  8. CANNABIDIOL [Concomitant]
     Active Substance: CANNABIDIOL

REACTIONS (7)
  - Fatigue [None]
  - Oedema peripheral [None]
  - Apathy [None]
  - Withdrawal syndrome [None]
  - Insomnia [None]
  - Vomiting [None]
  - Suspected product contamination [None]

NARRATIVE: CASE EVENT DATE: 20211201
